FAERS Safety Report 8667720 (Version 6)
Quarter: 2013Q4

REPORT INFORMATION
  Report Type: Spontaneous
  Country: BR (occurrence: BR)
  Receive Date: 20120717
  Receipt Date: 20131223
  Transmission Date: 20140711
  Serious: Yes (Hospitalization, Other)
  Sender: FDA-Public Use
  Company Number: BR-PFIZER INC-2012167566

PATIENT
  Age: 68 Year
  Sex: Female
  Weight: 64 kg

DRUGS (5)
  1. NORVASC [Suspect]
     Indication: HYPERTENSION
     Dosage: 10 MG (2 TABLETS OF 5MG), DAILY
     Route: 048
     Dates: start: 20091211
  2. OLMETEC HCT [Suspect]
     Indication: HYPERTENSION
     Dosage: STRENGTH: [20/12.5 MG]; ONCE DAILY
     Route: 048
     Dates: start: 20091211
  3. ANGIPRESS [Concomitant]
     Indication: HYPERTENSION
     Dosage: 25 MG, 2X/DAY
  4. RIVOTRIL [Concomitant]
     Indication: ANXIETY
     Dosage: 2 MG, 1X/DAY (AT NIGHT)
  5. OROXADIN [Concomitant]
     Indication: BLOOD CHOLESTEROL ABNORMAL
     Dosage: 1 DF, 1X/DAY

REACTIONS (3)
  - Renal cancer [Unknown]
  - Hypertension [Unknown]
  - Abdominal pain upper [Unknown]
